FAERS Safety Report 17499214 (Version 9)
Quarter: 2021Q1

REPORT INFORMATION
  Report Type: Report from Study
  Country: US (occurrence: US)
  Receive Date: 20200304
  Receipt Date: 20210216
  Transmission Date: 20210419
  Serious: Yes (Other)
  Sender: FDA-Public Use
  Company Number: US-TAKEDA-2020TUS012590

PATIENT
  Sex: Female

DRUGS (3)
  1. BRIGATINIB [Suspect]
     Active Substance: BRIGATINIB
     Indication: LUNG NEOPLASM MALIGNANT
     Dosage: 180 MILLIGRAM, QD
     Route: 048
     Dates: start: 201908
  2. BRIGATINIB [Suspect]
     Active Substance: BRIGATINIB
     Indication: BRONCHIAL NEOPLASM
  3. BRIGATINIB [Suspect]
     Active Substance: BRIGATINIB
     Indication: NON-SMALL CELL LUNG CANCER

REACTIONS (8)
  - Stress [Unknown]
  - Muscle spasms [Unknown]
  - Off label use [Unknown]
  - Diarrhoea [Unknown]
  - Adverse event [Unknown]
  - Cardiac disorder [Unknown]
  - Fatigue [Unknown]
  - Abdominal discomfort [Unknown]
